FAERS Safety Report 4339592-X (Version None)
Quarter: 2004Q1

REPORT INFORMATION
  Report Type: 
  Country: None (occurrence: None)
  Receive Date: 20040329
  Receipt Date: 20040223
  Transmission Date: 20041129
  Serious: No
  Sender: FDA-Public Use
  Company Number: 04P-163-0251045-00

PATIENT
  Age: 79 Year
  Sex: Male
  Weight: 86.1834 kg

DRUGS (10)
  1. HUMIRA [Suspect]
     Indication: RHEUMATOID ARTHRITIS
     Dosage: 40 MG, 1 IN 1 WK, SUBCUTANEOUS
     Route: 058
     Dates: start: 20031001
  2. DIGOXIN [Concomitant]
  3. PREDNISONE [Concomitant]
  4. CELECOXIB [Concomitant]
  5. FUROSEMIDE [Concomitant]
  6. IMURAN [Concomitant]
  7. COUMADIN [Concomitant]
  8. TRANDOLAPRIL [Concomitant]
  9. ATORVASTATIN [Concomitant]
  10. FISH OIL [Concomitant]

REACTIONS (3)
  - RASH MACULAR [None]
  - RASH PUSTULAR [None]
  - SKIN DISCOLOURATION [None]
